FAERS Safety Report 18664541 (Version 3)
Quarter: 2021Q1

REPORT INFORMATION
  Report Type: Spontaneous
  Country: US (occurrence: US)
  Receive Date: 20201225
  Receipt Date: 20210130
  Transmission Date: 20210419
  Serious: Yes (Life-Threatening, Hospitalization, Other)
  Sender: FDA-Public Use
  Company Number: US-AUROBINDO-AUR-APL-2020-062878

PATIENT
  Age: 63 Year
  Sex: Female

DRUGS (4)
  1. HYDROCHLOROTHIAZIDE;TRIAMTERENE [Concomitant]
     Active Substance: HYDROCHLOROTHIAZIDE\TRIAMTERENE
     Indication: HYPOKALAEMIA
     Dosage: UNK
     Route: 065
  2. FUROSEMIDE. [Suspect]
     Active Substance: FUROSEMIDE
     Indication: ACUTE KIDNEY INJURY
     Dosage: UNK
     Route: 065
  3. METOPROLOL. [Suspect]
     Active Substance: METOPROLOL
     Indication: HYPERTENSION
     Dosage: UNK
     Route: 065
  4. FLECAINIDE [Suspect]
     Active Substance: FLECAINIDE
     Indication: ATRIAL FIBRILLATION
     Dosage: 100 MILLIGRAM, TWO TIMES A DAY
     Route: 065

REACTIONS (14)
  - Toxicity to various agents [Recovering/Resolving]
  - Electrocardiogram QRS complex prolonged [Recovering/Resolving]
  - Atrioventricular block first degree [Recovering/Resolving]
  - Hypokalaemia [Recovering/Resolving]
  - Atrial fibrillation [Unknown]
  - Hyponatraemia [Recovering/Resolving]
  - Sinus bradycardia [Recovering/Resolving]
  - Diarrhoea [Unknown]
  - Drug hypersensitivity [Recovering/Resolving]
  - Ventricular tachycardia [Recovering/Resolving]
  - Bundle branch block left [Recovering/Resolving]
  - Acute kidney injury [Unknown]
  - Tachycardia [Unknown]
  - Asthenia [Unknown]
